FAERS Safety Report 13598096 (Version 3)
Quarter: 2017Q4

REPORT INFORMATION
  Report Type: Spontaneous
  Country: US (occurrence: US)
  Receive Date: 20170531
  Receipt Date: 20171207
  Transmission Date: 20180320
  Serious: Yes (Hospitalization, Other)
  Sender: FDA-Public Use
  Company Number: US-BAYER-2017-082776

PATIENT
  Age: 59 Year
  Sex: Female

DRUGS (2)
  1. MULTIVITAMIN [Concomitant]
     Active Substance: VITAMINS
  2. BETASERON [Suspect]
     Active Substance: INTERFERON BETA-1B
     Indication: MULTIPLE SCLEROSIS
     Dosage: 0.3 MG, QOD
     Route: 058
     Dates: start: 20170305

REACTIONS (4)
  - Fall [None]
  - Intervertebral disc protrusion [Recovering/Resolving]
  - Spinal fusion surgery [Recovering/Resolving]
  - Memory impairment [None]

NARRATIVE: CASE EVENT DATE: 2017
